FAERS Safety Report 13820371 (Version 1)
Quarter: 2017Q3

REPORT INFORMATION
  Report Type: Spontaneous
  Country: US (occurrence: US)
  Receive Date: 20170801
  Receipt Date: 20170801
  Transmission Date: 20171127
  Serious: Yes (Other)
  Sender: FDA-Public Use
  Company Number: US-PFIZER INC-2017327937

PATIENT
  Age: 59 Year
  Sex: Female
  Weight: 69 kg

DRUGS (4)
  1. ZOLOFT [Suspect]
     Active Substance: SERTRALINE HYDROCHLORIDE
     Indication: SUICIDE ATTEMPT
  2. COREG [Concomitant]
     Active Substance: CARVEDILOL
     Dosage: UNK
  3. ZOLOFT [Suspect]
     Active Substance: SERTRALINE HYDROCHLORIDE
     Indication: DEPRESSION
     Dosage: 100 MG, DAILY
     Route: 048
     Dates: start: 1997, end: 201707
  4. CRESTOR [Concomitant]
     Active Substance: ROSUVASTATIN CALCIUM
     Dosage: UNK

REACTIONS (14)
  - Fall [Unknown]
  - Angiopathy [Unknown]
  - Anaemia [Unknown]
  - Biliary cirrhosis primary [Unknown]
  - Rib fracture [Unknown]
  - Raynaud^s phenomenon [Unknown]
  - Thyroid mass [Unknown]
  - Osteoporosis postmenopausal [Unknown]
  - Essential hypertension [Unknown]
  - Osteitis deformans [Unknown]
  - Movement disorder [Unknown]
  - Mitral valve prolapse [Unknown]
  - Hepatitis B [Unknown]
  - Breast cancer [Unknown]

NARRATIVE: CASE EVENT DATE: 1999
